FAERS Safety Report 17995224 (Version 1)
Quarter: 2020Q3

REPORT INFORMATION
  Report Type: Spontaneous
  Country: US (occurrence: US)
  Receive Date: 20200708
  Receipt Date: 20200708
  Transmission Date: 20201103
  Serious: Yes (Other)
  Sender: FDA-Public Use
  Company Number: None

PATIENT
  Age: 40 Year
  Sex: Male
  Weight: 90.2 kg

DRUGS (14)
  1. ACETAMINOPHEN. [Concomitant]
     Active Substance: ACETAMINOPHEN
     Dates: start: 20200706, end: 20200706
  2. DEXAMETHASONE. [Concomitant]
     Active Substance: DEXAMETHASONE
     Dates: start: 20200706
  3. REMDESIVIR FOR EUA [Suspect]
     Active Substance: REMDESIVIR
     Indication: COVID-19
     Dates: start: 20200706, end: 20200706
  4. THIAMINE. [Concomitant]
     Active Substance: THIAMINE
     Dates: start: 20200706
  5. NOVOLOG [Concomitant]
     Active Substance: INSULIN ASPART
     Dates: start: 20200706
  6. THERADEX?M [Concomitant]
     Dates: start: 20200706
  7. AZITHROMYCIN ANHYDROUS. [Concomitant]
     Active Substance: AZITHROMYCIN ANHYDROUS
     Dates: start: 20200706
  8. ASPIRIN. [Concomitant]
     Active Substance: ASPIRIN
     Dates: start: 20200706
  9. VITAMIN C [Concomitant]
     Active Substance: ASCORBIC ACID
     Dates: start: 20200706
  10. NICODERM CQ [Concomitant]
     Active Substance: NICOTINE
     Dates: start: 20200706
  11. TRENTAL [Concomitant]
     Active Substance: PENTOXIFYLLINE
     Dates: start: 20200706
  12. ZINC SULFATE. [Concomitant]
     Active Substance: ZINC SULFATE
     Dates: start: 20200706
  13. ROBITUSSIN (GUAIFENESIN) [Concomitant]
     Active Substance: GUAIFENESIN
     Dates: start: 20200706
  14. FOLIC ACID. [Concomitant]
     Active Substance: FOLIC ACID
     Dates: start: 20200706

REACTIONS (4)
  - Blood alkaline phosphatase increased [None]
  - Aspartate aminotransferase increased [None]
  - SARS-CoV-2 test positive [None]
  - Alanine aminotransferase increased [None]

NARRATIVE: CASE EVENT DATE: 20200707
